FAERS Safety Report 6651037-3 (Version None)
Quarter: 2010Q1

REPORT INFORMATION
  Report Type: 
  Country: None (occurrence: None)
  Receive Date: 20100325
  Receipt Date: 20100319
  Transmission Date: 20100710
  Serious: Yes (Death, Hospitalization, Disabling, Other)
  Sender: FDA-Public Use
  Company Number: JP-BAYER-200811483BYL

PATIENT
  Age: 79 Year
  Sex: Male
  Weight: 50 kg

DRUGS (29)
  1. NEXAVAR [Suspect]
     Indication: RENAL CELL CARCINOMA
     Dosage: TOTAL DAILY DOSE: 800 MG  UNIT DOSE: 200 MG
     Route: 048
     Dates: start: 20080529, end: 20080612
  2. NEXAVAR [Suspect]
     Dosage: UNIT DOSE: 200 MG
     Route: 048
     Dates: start: 20080708, end: 20080715
  3. NEXAVAR [Suspect]
     Dosage: UNIT DOSE: 200 MG
     Route: 048
     Dates: start: 20080814, end: 20080815
  4. NEXAVAR [Suspect]
     Dosage: UNIT DOSE: 200 MG
     Route: 048
     Dates: start: 20080726, end: 20080811
  5. FIRSTCIN [Suspect]
     Indication: SEPSIS
     Route: 042
     Dates: start: 20080610, end: 20080612
  6. DECONTASIN [Suspect]
     Indication: SEPSIS
     Route: 042
     Dates: start: 20080825, end: 20080829
  7. DECONTASIN [Suspect]
     Route: 042
     Dates: start: 20080903, end: 20080907
  8. DECONTASIN [Suspect]
     Route: 042
     Dates: start: 20080912, end: 20080918
  9. VANCOMYCIN [Suspect]
     Indication: SEPSIS
     Route: 042
     Dates: start: 20080815, end: 20080816
  10. PANTOL [Suspect]
     Indication: ILEUS PARALYTIC
     Route: 042
     Dates: start: 20080614, end: 20081210
  11. TRIPAREN NO.1 [Concomitant]
     Indication: NUTRITIONAL SUPPORT
     Route: 042
     Dates: start: 20080422, end: 20081210
  12. AMINOLEBAN [Concomitant]
     Indication: NUTRITIONAL SUPPORT
     Route: 042
     Dates: start: 20080422, end: 20080602
  13. AMINOLEBAN [Concomitant]
     Route: 042
     Dates: start: 20080603, end: 20081210
  14. OTSUKA MV [Concomitant]
     Indication: NUTRITIONAL SUPPORT
     Route: 042
     Dates: start: 20080422, end: 20081210
  15. MEDLENIK [Concomitant]
     Indication: NUTRITIONAL SUPPORT
     Route: 042
     Dates: start: 20080422, end: 20081210
  16. KNMG-NO.3 [Concomitant]
     Indication: ELECTROLYTE SUBSTITUTION THERAPY
     Route: 042
     Dates: start: 20080527, end: 20080602
  17. 10% SODIUM CHLORIDE [Concomitant]
     Indication: ELECTROLYTE SUBSTITUTION THERAPY
     Dosage: UNIT DOSE: 10 %
     Route: 042
     Dates: start: 20080608, end: 20080621
  18. 10% SODIUM CHLORIDE [Concomitant]
     Dosage: UNIT DOSE: 10 %
     Route: 042
     Dates: start: 20080622, end: 20080707
  19. 10% SODIUM CHLORIDE [Concomitant]
     Dosage: UNIT DOSE: 10 %
     Route: 042
     Dates: start: 20080605, end: 20080607
  20. 10% SODIUM CHLORIDE [Concomitant]
     Dosage: UNIT DOSE: 10 %
     Route: 042
     Dates: start: 20080527, end: 20080604
  21. NEOPHAGEN C [Concomitant]
     Route: 042
     Dates: start: 20080301, end: 20081213
  22. HEPARIN NA LOCK [Concomitant]
     Route: 042
     Dates: start: 20080524, end: 20080617
  23. GLUCOSE [Concomitant]
     Indication: NUTRITIONAL SUPPORT
     Dosage: UNIT DOSE: 5 %
     Route: 042
     Dates: start: 20080603, end: 20081210
  24. FLOXAID [Concomitant]
     Indication: ELECTROLYTE SUBSTITUTION THERAPY
     Route: 042
     Dates: start: 20080606, end: 20080707
  25. INTRALIPID 20% [Concomitant]
     Indication: NUTRITIONAL SUPPORT
     Dosage: 100 ML PER 2 OR 3 DAYS
     Route: 042
     Dates: start: 20080511, end: 20080629
  26. CANDESARTAN CILEXETIL [Concomitant]
     Route: 048
     Dates: start: 20080229, end: 20080927
  27. ANPEC [Concomitant]
     Indication: ANALGESIC THERAPY
     Route: 054
     Dates: start: 20080512, end: 20080612
  28. ANPEC [Concomitant]
     Route: 054
     Dates: start: 20080613, end: 20081110
  29. VOLTAREN [Concomitant]
     Route: 054

REACTIONS (18)
  - ALOPECIA [None]
  - ANAEMIA [None]
  - DIARRHOEA [None]
  - FISTULA [None]
  - GASTROINTESTINAL HAEMORRHAGE [None]
  - ILEUS PARALYTIC [None]
  - LIPASE INCREASED [None]
  - NAUSEA [None]
  - PALMAR-PLANTAR ERYTHRODYSAESTHESIA SYNDROME [None]
  - PLATELET COUNT DECREASED [None]
  - PLEURAL EFFUSION [None]
  - PNEUMONIA ASPIRATION [None]
  - RASH [None]
  - RENAL CELL CARCINOMA [None]
  - RENAL IMPAIRMENT [None]
  - RETROPERITONEAL ABSCESS [None]
  - SEPSIS [None]
  - VOMITING [None]
